FAERS Safety Report 20011389 (Version 1)
Quarter: 2021Q4

REPORT INFORMATION
  Report Type: Spontaneous
  Country: US (occurrence: US)
  Receive Date: 20211028
  Receipt Date: 20211028
  Transmission Date: 20220303
  Serious: No
  Sender: FDA-Public Use
  Company Number: US-AMGEN-USASP2021159915

PATIENT
  Age: 67 Year
  Sex: Female

DRUGS (1)
  1. REPATHA [Suspect]
     Active Substance: EVOLOCUMAB
     Indication: Hyperlipidaemia
     Dosage: 140 MILLIGRAM, Q2WK
     Route: 065
     Dates: start: 202009, end: 202101

REACTIONS (11)
  - Drug intolerance [Unknown]
  - Abdominal discomfort [Recovered/Resolved]
  - Gastric disorder [Recovered/Resolved]
  - Pain in extremity [Unknown]
  - Muscular weakness [Unknown]
  - Wrong technique in device usage process [Unknown]
  - Accidental exposure to product [Unknown]
  - Illness [Unknown]
  - Blood cholesterol increased [Unknown]
  - Injection site pain [Unknown]
  - Eating disorder [Unknown]

NARRATIVE: CASE EVENT DATE: 20200101
